FAERS Safety Report 9302605 (Version 2)
Quarter: 2013Q3

REPORT INFORMATION
  Report Type: Spontaneous
  Country: US (occurrence: US)
  Receive Date: 20130522
  Receipt Date: 20130725
  Transmission Date: 20140515
  Serious: Yes (Death, Other)
  Sender: FDA-Public Use
  Company Number: US-PFIZER INC-2013156137

PATIENT
  Age: 54 Year
  Sex: Male
  Weight: 77.1 kg

DRUGS (1)
  1. SUTENT [Suspect]
     Indication: RENAL CELL CARCINOMA
     Dosage: 50 MG, CYCLIC (50 MG DAILY, 4 WEEKS ON, 2 WEEKS OFF)
     Dates: start: 20130301

REACTIONS (3)
  - Death [Fatal]
  - Dyspnoea [Not Recovered/Not Resolved]
  - Hypercalcaemia [Not Recovered/Not Resolved]
